FAERS Safety Report 8300157 (Version 3)
Quarter: 2015Q1

REPORT INFORMATION
  Report Type: Spontaneous
  Country: US (occurrence: US)
  Receive Date: 20111219
  Receipt Date: 20150209
  Transmission Date: 20150721
  Serious: No
  Sender: FDA-Public Use
  Company Number: US-ASTRAZENECA-2011SE50260

PATIENT
  Age: 85 Year
  Sex: Female

DRUGS (1)
  1. CRESTOR [Suspect]
     Active Substance: ROSUVASTATIN CALCIUM
     Indication: BLOOD CHOLESTEROL
     Route: 048

REACTIONS (8)
  - Influenza [Recovered/Resolved]
  - Pain [Recovered/Resolved]
  - Oropharyngeal pain [Unknown]
  - Nausea [Recovered/Resolved]
  - Malaise [Unknown]
  - Hypoacusis [Unknown]
  - Nasopharyngitis [Unknown]
  - Back pain [Recovered/Resolved]
